FAERS Safety Report 24449282 (Version 1)
Quarter: 2024Q4

REPORT INFORMATION
  Report Type: Spontaneous
  Country: US (occurrence: US)
  Receive Date: 20241017
  Receipt Date: 20241017
  Transmission Date: 20250115
  Serious: No
  Sender: ALK-ABELLO
  Company Number: US-ALK-ABELLO A/S-2024AA003475

PATIENT

DRUGS (19)
  1. BETULA PENDULA POLLEN [Suspect]
     Active Substance: BETULA PENDULA POLLEN
     Indication: Product used for unknown indication
     Dosage: UNK
     Route: 060
     Dates: start: 20240618
  2. ACER NEGUNDO POLLEN [Suspect]
     Active Substance: ACER NEGUNDO POLLEN
     Indication: Product used for unknown indication
     Dosage: UNK
     Route: 060
     Dates: start: 20240618
  3. POPULUS DELTOIDES SUBSP. MONILIFERA POLLEN [Suspect]
     Active Substance: POPULUS DELTOIDES SUBSP. MONILIFERA POLLEN
     Indication: Product used for unknown indication
     Dosage: UNK
     Route: 060
     Dates: start: 20240618
  4. JUNIPERUS CALIFORNICA POLLEN [Suspect]
     Active Substance: JUNIPERUS CALIFORNICA POLLEN
     Indication: Product used for unknown indication
     Dosage: UNK
     Route: 060
     Dates: start: 20240618
  5. PLANTAGO LANCEOLATA POLLEN [Suspect]
     Active Substance: PLANTAGO LANCEOLATA POLLEN
     Indication: Product used for unknown indication
     Dosage: UNK
     Route: 060
     Dates: start: 20240618
  6. ALFALFA POLLEN [Suspect]
     Active Substance: MEDICAGO SATIVA POLLEN
     Indication: Product used for unknown indication
     Dosage: UNK
     Route: 060
     Dates: start: 20240618
  7. AGROSTIS GIGANTEA POLLEN\DACTYLIS GLOMERATA\FESTUCA PRATENSIS\LOLIUM P [Suspect]
     Active Substance: AGROSTIS GIGANTEA POLLEN\DACTYLIS GLOMERATA\FESTUCA PRATENSIS\LOLIUM PERENNE\PHLEUM PRATENSE\POA PRA
     Indication: Product used for unknown indication
     Dosage: UNK
     Route: 060
     Dates: start: 20240618
  8. AMARANTHUS RETROFLEXUS POLLEN [Suspect]
     Active Substance: AMARANTHUS RETROFLEXUS POLLEN
     Indication: Product used for unknown indication
     Dosage: UNK
     Route: 060
     Dates: start: 20240618
  9. AMBROSIA ARTEMISIIFOLIA POLLEN [Suspect]
     Active Substance: AMBROSIA ARTEMISIIFOLIA POLLEN
     Indication: Product used for unknown indication
     Dosage: UNK
     Route: 060
     Dates: start: 20240618
  10. SALSOLA KALI POLLEN [Suspect]
     Active Substance: SALSOLA KALI POLLEN
     Indication: Product used for unknown indication
     Dosage: UNK
     Route: 060
     Dates: start: 20240618
  11. ARTEMISIA TRIDENTATA POLLEN [Suspect]
     Active Substance: ARTEMISIA TRIDENTATA POLLEN
     Indication: Product used for unknown indication
     Dosage: UNK
     Route: 060
     Dates: start: 20240618
  12. RUMEX ACETOSELLA POLLEN [Suspect]
     Active Substance: RUMEX ACETOSELLA POLLEN
     Indication: Product used for unknown indication
     Dosage: UNK
     Route: 060
     Dates: start: 20240618
  13. EQUUS CABALLUS SKIN [Suspect]
     Active Substance: EQUUS CABALLUS SKIN
     Indication: Product used for unknown indication
     Dosage: UNK
     Route: 060
     Dates: start: 20240618
  14. GLYCERIN [Suspect]
     Active Substance: GLYCERIN
     Indication: Product used for unknown indication
     Dosage: UNK
     Route: 060
     Dates: start: 20240618
  15. STERILE DILUENT FOR ALLERGENIC EXTRACT NOS [Suspect]
     Active Substance: ALBUMIN HUMAN OR GLYCERIN OR PHENOL
     Indication: Product used for unknown indication
     Dosage: UNK
     Route: 060
     Dates: start: 20240618
  16. ADDERALL [Concomitant]
     Active Substance: AMPHETAMINE ASPARTATE\AMPHETAMINE SULFATE\DEXTROAMPHETAMINE SACCHARATE\DEXTROAMPHETAMINE SULFATE
  17. ALBUTEROL [Concomitant]
     Active Substance: ALBUTEROL
  18. FLONASE [Concomitant]
     Active Substance: FLUTICASONE PROPIONATE
  19. ZYRTEC [Concomitant]
     Active Substance: CETIRIZINE HYDROCHLORIDE

REACTIONS (2)
  - Incorrect route of product administration [Unknown]
  - Off label use [Unknown]

NARRATIVE: CASE EVENT DATE: 20240618
